FAERS Safety Report 8518339-7 (Version None)
Quarter: 2012Q3

REPORT INFORMATION
  Report Type: 
  Country: None (occurrence: None)
  Receive Date: 20120718
  Receipt Date: 20120202
  Transmission Date: 20120928
  Serious: No
  Sender: FDA-Public Use
  Company Number: US-BRISTOL-MYERS SQUIBB COMPANY-16381568

PATIENT
  Age: 88 Year
  Sex: Female

DRUGS (5)
  1. ATENOLOL [Concomitant]
  2. DIGOXIN [Concomitant]
  3. PREVACID [Concomitant]
  4. LOSARTAN POTASSIUM [Concomitant]
     Dosage: BRAND: ZYLTAN
  5. COUMADIN [Suspect]
     Dosage: DURATION: 7 YRS. SWITCHED TO GENERIC WARFARIN 6 MONTHS AGO

REACTIONS (2)
  - PRURITUS [None]
  - ALOPECIA [None]
